FAERS Safety Report 8270899 (Version 3)
Quarter: 2014Q2

REPORT INFORMATION
  Report Type: Report from Study
  Country: FR (occurrence: FR)
  Receive Date: 20111201
  Receipt Date: 20140630
  Transmission Date: 20141212
  Serious: Yes (Hospitalization, Other)
  Sender: FDA-Public Use
  Company Number: PHHY2011FR101322

PATIENT
  Age: 68 Year
  Sex: Female
  Weight: 72 kg

DRUGS (4)
  1. AMN107 [Suspect]
     Indication: CHRONIC MYELOID LEUKAEMIA
     Dosage: 800 MG, DAILY
     Route: 048
     Dates: start: 20111109, end: 20120109
  2. LERCAN [Concomitant]
     Indication: HYPERTENSION
  3. LASILIX [Concomitant]
     Indication: HYPERTENSION
     Dosage: 20 MG, DAILY
  4. ESCITALOPRAM [Concomitant]
     Indication: DEPRESSION
     Dosage: 15 MG, DAILY
     Route: 048

REACTIONS (10)
  - Dyspnoea [Recovered/Resolved]
  - C-reactive protein increased [Not Recovered/Not Resolved]
  - Neutrophil count increased [Not Recovered/Not Resolved]
  - Chills [Not Recovered/Not Resolved]
  - Tremor [Not Recovered/Not Resolved]
  - Myalgia [Not Recovered/Not Resolved]
  - Cough [Not Recovered/Not Resolved]
  - Mean platelet volume increased [Unknown]
  - Blood glucose increased [Recovered/Resolved]
  - Hyperlipidaemia [Recovered/Resolved]
